FAERS Safety Report 8862529 (Version 3)
Quarter: 2013Q2

REPORT INFORMATION
  Report Type: Report from Study
  Country: JP (occurrence: JP)
  Receive Date: 20121026
  Receipt Date: 20130523
  Transmission Date: 20140414
  Serious: Yes (Other)
  Sender: FDA-Public Use
  Company Number: JP-009507513-1210JPN006773

PATIENT
  Age: 63 Year
  Sex: Male
  Weight: 68 kg

DRUGS (13)
  1. PEGINTRON [Suspect]
     Indication: CHRONIC HEPATITIS C
     Dosage: 1.5 MICROGRAM PER KILOGRAM, QW
     Route: 058
     Dates: start: 20120629, end: 20121210
  2. REBETOL [Suspect]
     Indication: CHRONIC HEPATITIS C
     Dosage: 800 MG, QD
     Route: 048
     Dates: start: 20120629, end: 20120710
  3. REBETOL [Suspect]
     Dosage: 600 MG, QD
     Route: 048
     Dates: start: 20120711, end: 20120729
  4. REBETOL [Suspect]
     Dosage: 200 MG, QD
     Route: 048
     Dates: start: 20120730, end: 20121217
  5. TELAVIC [Suspect]
     Indication: CHRONIC HEPATITIS C
     Dosage: 1500 MG, QD
     Route: 048
     Dates: start: 20120629, end: 20120819
  6. TELAVIC [Suspect]
     Dosage: 750 MG, QD
     Route: 048
     Dates: start: 20120820, end: 20120903
  7. ALLOPURINOL [Concomitant]
     Dosage: 1-3 TABS/DAY, AS NEEDED
     Route: 048
     Dates: start: 20120629
  8. MAINTATE [Concomitant]
     Indication: CARDIAC DISORDER
     Dosage: 1.25 MG, QD
     Route: 048
     Dates: start: 20120702, end: 20130110
  9. DIGOSIN [Concomitant]
     Indication: CARDIAC DISORDER
     Dosage: 0.125 MG, QD
     Route: 048
     Dates: start: 20120702, end: 20130110
  10. WARFARIN POTASSIUM [Concomitant]
     Dosage: 6 MG, QD
     Route: 048
     Dates: start: 20120702
  11. THYRADIN-S [Concomitant]
     Dosage: 50 MICROGRAM, QD
     Route: 048
     Dates: start: 20120702
  12. BEZATOL SR [Concomitant]
     Dosage: 400 MG, QD
     Route: 048
     Dates: start: 20120723
  13. ALLEGRA [Concomitant]
     Indication: RASH
     Dosage: 120 MG, QD
     Route: 048
     Dates: start: 20120827, end: 20120923

REACTIONS (1)
  - Rash [Recovering/Resolving]
